FAERS Safety Report 5707446-X (Version None)
Quarter: 2008Q2

REPORT INFORMATION
  Report Type: 
  Country: None (occurrence: None)
  Receive Date: 20080416
  Receipt Date: 20080402
  Transmission Date: 20081010
  Serious: Yes (Hospitalization)
  Sender: FDA-Public Use
  Company Number: IT-GENENTECH-259112

PATIENT
  Sex: Female

DRUGS (1)
  1. AVASTIN [Suspect]
     Indication: MACULOPATHY
     Dosage: 1.25 MG, SINGLE
     Route: 031
     Dates: start: 20080124, end: 20080124

REACTIONS (1)
  - DEEP VEIN THROMBOSIS [None]
